FAERS Safety Report 5754720-7 (Version None)
Quarter: 2008Q2

REPORT INFORMATION
  Report Type: 
  Country: None (occurrence: None)
  Receive Date: 20080530
  Receipt Date: 20080521
  Transmission Date: 20081010
  Serious: Yes (Other)
  Sender: FDA-Public Use
  Company Number: US-PFIZER INC-2008044030

PATIENT
  Sex: Female

DRUGS (5)
  1. LIPITOR [Suspect]
     Indication: BLOOD CHOLESTEROL INCREASED
  2. OPHTHALMOLOGICALS [Concomitant]
  3. CALCIUM W/MAGNESIUM [Concomitant]
  4. IMITREX [Concomitant]
  5. RELPAX [Concomitant]

REACTIONS (1)
  - WEIGHT DECREASED [None]
